FAERS Safety Report 4599810-X (Version None)
Quarter: 2005Q1

REPORT INFORMATION
  Report Type: 
  Country: None (occurrence: None)
  Receive Date: 20050303
  Receipt Date: 20050216
  Transmission Date: 20050727
  Serious: Yes (Other)
  Sender: FDA-Public Use
  Company Number: 141007USA

PATIENT
  Age: 46 Year
  Sex: Male

DRUGS (1)
  1. MEXILETINE HCL [Suspect]
     Indication: CORONARY ARTERY OCCLUSION
     Dates: start: 19970101, end: 20041225

REACTIONS (10)
  - FEELING ABNORMAL [None]
  - HAEMORRHAGE [None]
  - HAEMORRHAGE URINARY TRACT [None]
  - HEADACHE [None]
  - INCISION SITE HAEMORRHAGE [None]
  - MEDICATION TAMPERING [None]
  - OCULAR HYPERAEMIA [None]
  - PHARMACEUTICAL PRODUCT COMPLAINT [None]
  - RECTAL HAEMORRHAGE [None]
  - SUSPICIOUSNESS [None]
